FAERS Safety Report 19805598 (Version 2)
Quarter: 2021Q3

REPORT INFORMATION
  Report Type: Report from Study
  Country: US (occurrence: US)
  Receive Date: 20210908
  Receipt Date: 20210923
  Transmission Date: 20211014
  Serious: Yes (Other)
  Sender: FDA-Public Use
  Company Number: NVSC2020US110724

PATIENT
  Age: 5 Month
  Sex: Female
  Weight: 8.8 kg

DRUGS (6)
  1. GSK1120212 [Suspect]
     Active Substance: TRAMETINIB
     Indication: HYPERTROPHIC CARDIOMYOPATHY
     Dosage: 0.01875 MG/KG, QD
     Route: 048
     Dates: end: 20210826
  2. GSK1120212 [Suspect]
     Active Substance: TRAMETINIB
     Indication: ARRHYTHMIA SUPRAVENTRICULAR
  3. CEFEPIME [Concomitant]
     Active Substance: CEFEPIME HYDROCHLORIDE
     Indication: EVIDENCE BASED TREATMENT
     Dosage: UNK
     Route: 065
  4. GSK1120212 [Suspect]
     Active Substance: TRAMETINIB
     Indication: NOONAN SYNDROME
     Dosage: 0.025 MG/KG, QD
     Route: 048
     Dates: start: 20200322
  5. VANCOMYCIN [Concomitant]
     Active Substance: VANCOMYCIN
     Indication: EVIDENCE BASED TREATMENT
     Dosage: UNK
     Route: 065
  6. BICARBONATE [Concomitant]
     Active Substance: SODIUM BICARBONATE
     Indication: PRODUCT USED FOR UNKNOWN INDICATION
     Dosage: UNK
     Route: 065

REACTIONS (5)
  - Rash [Recovered/Resolved]
  - Pyrexia [Recovered/Resolved]
  - Diarrhoea [Recovered/Resolved]
  - Arrhythmia [Unknown]
  - Eosinophilia [Recovered/Resolved]

NARRATIVE: CASE EVENT DATE: 20200404
